FAERS Safety Report 24433829 (Version 1)
Quarter: 2024Q4

REPORT INFORMATION
  Report Type: Spontaneous
  Country: US (occurrence: US)
  Receive Date: 20241014
  Receipt Date: 20241014
  Transmission Date: 20250115
  Serious: No
  Sender: SPROUT PHARMACEUTICALS, INC.
  Company Number: US-Sprout Pharmaceuticals, Inc.-2024SP000057

PATIENT
  Age: 47 Year
  Sex: Female

DRUGS (1)
  1. ADDYI [Suspect]
     Active Substance: FLIBANSERIN
     Indication: Product used for unknown indication
     Dosage: RX # 1678-8974-8466
     Route: 048

REACTIONS (11)
  - Dizziness [Unknown]
  - Hypersensitivity [Unknown]
  - Nausea [Unknown]
  - Palpitations [Unknown]
  - Headache [Unknown]
  - Brain fog [Unknown]
  - Vision blurred [Unknown]
  - Dysarthria [Unknown]
  - Feeling drunk [Unknown]
  - Migraine [Unknown]
  - Blood pressure increased [Unknown]

NARRATIVE: CASE EVENT DATE: 20240201
